FAERS Safety Report 18037641 (Version 4)
Quarter: 2020Q4

REPORT INFORMATION
  Report Type: Spontaneous
  Country: US (occurrence: US)
  Receive Date: 20200717
  Receipt Date: 20201125
  Transmission Date: 20210113
  Serious: No
  Sender: FDA-Public Use
  Company Number: US-SA-2020SA184980

PATIENT

DRUGS (1)
  1. CABLIVI [Suspect]
     Active Substance: CAPLACIZUMAB-YHDP
     Indication: THROMBOTIC THROMBOCYTOPENIC PURPURA
     Route: 065

REACTIONS (10)
  - Mobility decreased [Unknown]
  - Anosmia [Unknown]
  - Ageusia [Unknown]
  - Back disorder [Unknown]
  - Cough [Unknown]
  - Malaise [Unknown]
  - Nasal congestion [Unknown]
  - Injection site bruising [Unknown]
  - Suspected COVID-19 [Unknown]
  - Unevaluable event [Unknown]

NARRATIVE: CASE EVENT DATE: 2019
